FAERS Safety Report 8024437-7 (Version None)
Quarter: 2012Q1

REPORT INFORMATION
  Report Type: 
  Country: None (occurrence: None)
  Receive Date: 20120105
  Receipt Date: 20111226
  Transmission Date: 20120608
  Serious: Yes (Hospitalization, Other)
  Sender: FDA-Public Use
  Company Number: PHHY2011JP109438

PATIENT
  Sex: Female

DRUGS (6)
  1. BETAXOLOL HYDROCHLORIDE [Concomitant]
  2. FUROSEMIDE [Concomitant]
  3. AMLODIPINE [Concomitant]
  4. OLMESARTAN MEDOXOMIL [Concomitant]
  5. METHIAZIDE [Concomitant]
  6. ALISKIREN [Suspect]
     Indication: HYPERTENSION
     Route: 048

REACTIONS (6)
  - FIBROMUSCULAR DYSPLASIA [None]
  - MALAISE [None]
  - RENAL IMPAIRMENT [None]
  - RENAL ARTERY STENOSIS [None]
  - NEPHROPATHY [None]
  - DRUG ERUPTION [None]
